FAERS Safety Report 5542064-8 (Version None)
Quarter: 2007Q4

REPORT INFORMATION
  Report Type: 
  Country: None (occurrence: None)
  Receive Date: 20071210
  Receipt Date: 20071203
  Transmission Date: 20080405
  Serious: Yes (Disabling)
  Sender: FDA-Public Use
  Company Number: US-ASTRAZENECA-2007UW27581

PATIENT
  Age: 6 Year
  Sex: Male

DRUGS (5)
  1. PULMICORT RESPULES [Suspect]
     Indication: ASTHMA
     Route: 055
  2. PULMICORT RESPULES [Suspect]
     Route: 055
  3. ORAPRED [Concomitant]
     Indication: ASTHMA
  4. ORAPRED [Concomitant]
  5. XOPENEX [Concomitant]
     Indication: ASTHMA

REACTIONS (4)
  - DYSPNOEA [None]
  - FLUSHING [None]
  - PANIC REACTION [None]
  - RESPIRATORY DISTRESS [None]
